FAERS Safety Report 19087523 (Version 2)
Quarter: 2021Q2

REPORT INFORMATION
  Report Type: Report from Study
  Country: FR (occurrence: FR)
  Receive Date: 20210402
  Receipt Date: 20210503
  Transmission Date: 20210717
  Serious: Yes (Hospitalization, Other)
  Sender: FDA-Public Use
  Company Number: NVSC2021FR030239

PATIENT
  Age: 71 Year
  Sex: Female
  Weight: 70.1 kg

DRUGS (55)
  1. ADOPORT [Suspect]
     Active Substance: TACROLIMUS
     Dosage: 7 MG
     Route: 048
     Dates: start: 20200211
  2. ADOPORT [Suspect]
     Active Substance: TACROLIMUS
     Dosage: 11 MG
     Route: 048
     Dates: start: 20200211
  3. ADOPORT [Suspect]
     Active Substance: TACROLIMUS
     Dosage: 10 MG
     Route: 048
     Dates: start: 20200211, end: 20200219
  4. ADOPORT [Suspect]
     Active Substance: TACROLIMUS
     Dosage: 15 MG
     Route: 048
     Dates: start: 20200305, end: 20200306
  5. PARACETAMOL [Concomitant]
     Active Substance: ACETAMINOPHEN
     Indication: PRODUCT USED FOR UNKNOWN INDICATION
     Dosage: UNK
     Route: 065
     Dates: start: 20200211
  6. LEVOTHYROX [Concomitant]
     Active Substance: LEVOTHYROXINE
     Indication: PRODUCT USED FOR UNKNOWN INDICATION
     Dosage: UNK
     Route: 065
     Dates: start: 20200215
  7. BASILIXIMAB [Concomitant]
     Active Substance: BASILIXIMAB
     Dosage: UNK
     Route: 065
     Dates: start: 20200215, end: 20200215
  8. FLUCONAZOLE. [Concomitant]
     Active Substance: FLUCONAZOLE
     Indication: PRODUCT USED FOR UNKNOWN INDICATION
     Dosage: UNK
     Route: 065
     Dates: start: 20201210, end: 20201211
  9. ADOPORT [Suspect]
     Active Substance: TACROLIMUS
     Dosage: 7.5 MG
     Route: 048
     Dates: start: 20200225, end: 20200226
  10. ADOPORT [Suspect]
     Active Substance: TACROLIMUS
     Dosage: 8 MG
     Route: 048
     Dates: start: 20201215, end: 20201230
  11. BROMAZEPAM [Concomitant]
     Active Substance: BROMAZEPAM
     Indication: PRODUCT USED FOR UNKNOWN INDICATION
     Dosage: UNK
     Route: 065
     Dates: start: 20200212
  12. ADOPORT [Suspect]
     Active Substance: TACROLIMUS
     Dosage: 7.5 MG
     Route: 048
     Dates: start: 20200221, end: 20200222
  13. ADOPORT [Suspect]
     Active Substance: TACROLIMUS
     Dosage: 6 MG
     Route: 048
     Dates: start: 20201209, end: 20201210
  14. PANTOPRAZOLE [Concomitant]
     Active Substance: PANTOPRAZOLE
     Indication: PRODUCT USED FOR UNKNOWN INDICATION
     Dosage: UNK
     Route: 065
     Dates: start: 20200212
  15. NICARDIPINE [Concomitant]
     Active Substance: NICARDIPINE
     Indication: PRODUCT USED FOR UNKNOWN INDICATION
     Dosage: UNK
     Route: 065
     Dates: start: 20200907, end: 20200907
  16. ADOPORT [Suspect]
     Active Substance: TACROLIMUS
     Dosage: 12 MG
     Route: 048
     Dates: start: 20200303, end: 20200304
  17. ADOPORT [Suspect]
     Active Substance: TACROLIMUS
     Dosage: 7 MG
     Route: 048
     Dates: start: 20201214, end: 20201215
  18. ADOPORT [Suspect]
     Active Substance: TACROLIMUS
     Dosage: 9 MG
     Route: 048
     Dates: start: 20201230, end: 20201231
  19. BACTRIM [Concomitant]
     Active Substance: SULFAMETHOXAZOLE\TRIMETHOPRIM
     Indication: PRODUCT USED FOR UNKNOWN INDICATION
     Dosage: UNK
     Route: 065
     Dates: start: 20200212
  20. ADOPORT [Suspect]
     Active Substance: TACROLIMUS
     Dosage: 6 MG
     Route: 048
     Dates: start: 20200222, end: 20200224
  21. ADOPORT [Suspect]
     Active Substance: TACROLIMUS
     Dosage: 8 MG
     Route: 048
     Dates: start: 20200229, end: 20200301
  22. ADOPORT [Suspect]
     Active Substance: TACROLIMUS
     Dosage: 10 MG
     Route: 048
     Dates: start: 20200302, end: 20200303
  23. ADOPORT [Suspect]
     Active Substance: TACROLIMUS
     Dosage: 8 MG
     Route: 048
     Dates: start: 20210101, end: 20210113
  24. TEMERIT [Concomitant]
     Active Substance: NEBIVOLOL
     Indication: PRODUCT USED FOR UNKNOWN INDICATION
     Dosage: UNK
     Route: 065
     Dates: start: 20200217
  25. NEORECORMON [Concomitant]
     Active Substance: ERYTHROPOIETIN
     Indication: PRODUCT USED FOR UNKNOWN INDICATION
     Dosage: UNK
     Route: 065
     Dates: start: 20200215, end: 20200304
  26. BASILIXIMAB [Concomitant]
     Active Substance: BASILIXIMAB
     Indication: PRODUCT USED FOR UNKNOWN INDICATION
     Dosage: UNK
     Route: 065
     Dates: start: 20200211, end: 20200211
  27. NICARDIPINE [Concomitant]
     Active Substance: NICARDIPINE
     Dosage: UNK
     Route: 065
     Dates: start: 20200516, end: 20200518
  28. ADOPORT [Suspect]
     Active Substance: TACROLIMUS
     Dosage: 8 MG
     Route: 048
     Dates: start: 20200211
  29. ADOPORT [Suspect]
     Active Substance: TACROLIMUS
     Dosage: 9 MG
     Route: 048
     Dates: start: 20200220, end: 20200221
  30. ADOPORT [Suspect]
     Active Substance: TACROLIMUS
     Dosage: 7 MG
     Route: 048
     Dates: start: 20200226, end: 20200228
  31. ADOPORT [Suspect]
     Active Substance: TACROLIMUS
     Dosage: 16 MG
     Route: 048
     Dates: start: 20200306, end: 20200401
  32. ADOPORT [Suspect]
     Active Substance: TACROLIMUS
     Dosage: 12 MG
     Route: 048
     Dates: start: 20200401, end: 20200915
  33. ADOPORT [Suspect]
     Active Substance: TACROLIMUS
     Dosage: 8 MG
     Route: 048
     Dates: start: 20200915
  34. AMIODARONE [Concomitant]
     Active Substance: AMIODARONE
     Indication: PRODUCT USED FOR UNKNOWN INDICATION
     Dosage: UNK
     Route: 065
     Dates: start: 20200217
  35. INSULIN [Concomitant]
     Active Substance: INSULIN NOS
     Indication: PRODUCT USED FOR UNKNOWN INDICATION
     Dosage: UNK
     Route: 065
     Dates: start: 20200211, end: 20200214
  36. METHYLPREDNISOLONE. [Concomitant]
     Active Substance: METHYLPREDNISOLONE
     Indication: PRODUCT USED FOR UNKNOWN INDICATION
     Dosage: UNK
     Route: 065
     Dates: start: 20200211, end: 20200212
  37. ADOPORT [Suspect]
     Active Substance: TACROLIMUS
     Dosage: 9 MG
     Route: 048
     Dates: start: 20200301, end: 20200302
  38. ADOPORT [Suspect]
     Active Substance: TACROLIMUS
     Dosage: 5 MG
     Route: 048
     Dates: start: 20201210, end: 20201211
  39. ADOPORT [Suspect]
     Active Substance: TACROLIMUS
     Dosage: 6 MG
     Route: 048
     Dates: start: 20201211, end: 20201214
  40. SODIUM BICARBONATE. [Concomitant]
     Active Substance: SODIUM BICARBONATE
     Indication: PRODUCT USED FOR UNKNOWN INDICATION
     Dosage: UNK
     Route: 065
     Dates: start: 20200212
  41. ISONIAZID. [Concomitant]
     Active Substance: ISONIAZID
     Indication: ANTIBIOTIC PROPHYLAXIS
     Dosage: UNK
     Route: 065
     Dates: start: 20200222, end: 20200914
  42. RIFAMPICIN [Concomitant]
     Active Substance: RIFAMPIN
     Indication: ANTIBIOTIC PROPHYLAXIS
     Dosage: UNK
     Route: 065
     Dates: start: 20200221, end: 20200914
  43. MYCOPHENOLATE MOFETIL. [Concomitant]
     Active Substance: MYCOPHENOLATE MOFETIL
     Indication: PRODUCT USED FOR UNKNOWN INDICATION
     Dosage: UNK
     Route: 065
     Dates: start: 20200211
  44. PREDNISONE. [Concomitant]
     Active Substance: PREDNISONE
     Indication: PRODUCT USED FOR UNKNOWN INDICATION
     Dosage: UNK
     Route: 065
     Dates: start: 20200213
  45. ADOPORT [Suspect]
     Active Substance: TACROLIMUS
     Indication: RENAL TRANSPLANT
     Dosage: 12 MG
     Route: 048
     Dates: start: 20200211
  46. ADOPORT [Suspect]
     Active Substance: TACROLIMUS
     Dosage: 9.5 MG
     Route: 048
     Dates: start: 20200219, end: 20200220
  47. ADOPORT [Suspect]
     Active Substance: TACROLIMUS
     Dosage: 7 MG
     Route: 048
     Dates: start: 20200224, end: 20200225
  48. ADOPORT [Suspect]
     Active Substance: TACROLIMUS
     Dosage: 7.5 MG
     Route: 048
     Dates: start: 20200228, end: 20200229
  49. ADOPORT [Suspect]
     Active Substance: TACROLIMUS
     Dosage: 14 MG
     Route: 048
     Dates: start: 20200304, end: 20200305
  50. ADOPORT [Suspect]
     Active Substance: TACROLIMUS
     Dosage: 14 MG
     Route: 048
     Dates: start: 20201117, end: 20201118
  51. ADOPORT [Suspect]
     Active Substance: TACROLIMUS
     Dosage: 8 MG
     Route: 048
     Dates: start: 20201118, end: 20201209
  52. ADOPORT [Suspect]
     Active Substance: TACROLIMUS
     Dosage: 10 MG
     Route: 048
     Dates: start: 20201231, end: 20210101
  53. ADOPORT [Suspect]
     Active Substance: TACROLIMUS
     Dosage: 4 MG
     Route: 048
     Dates: start: 20210113
  54. ACUPAN [Concomitant]
     Active Substance: NEFOPAM HYDROCHLORIDE
     Indication: PRODUCT USED FOR UNKNOWN INDICATION
     Dosage: UNK
     Route: 065
     Dates: start: 20200211, end: 20200223
  55. SPASFON [Concomitant]
     Indication: PRODUCT USED FOR UNKNOWN INDICATION
     Dosage: UNK
     Route: 065
     Dates: start: 20200217

REACTIONS (29)
  - Hyperkalaemia [Recovered/Resolved]
  - Blood creatinine increased [Unknown]
  - Enterobacter test positive [Recovered/Resolved]
  - Proteinuria [Recovered/Resolved]
  - Asthenia [Recovered/Resolved]
  - Hypochloraemia [Recovered/Resolved]
  - Hypotension [Recovered/Resolved]
  - Hypotension [Recovered/Resolved]
  - Catheter site related reaction [Recovered/Resolved]
  - Malnutrition [Recovering/Resolving]
  - Pelvi-ureteric obstruction [Recovered/Resolved]
  - Proteinuria [Recovered/Resolved]
  - Dyspnoea exertional [Recovered/Resolved]
  - Urinary tract infection [Recovered/Resolved]
  - Fluid overload [Recovered/Resolved]
  - Hyponatraemia [Recovered/Resolved]
  - Anaemia [Recovered/Resolved]
  - Diarrhoea [Recovered/Resolved]
  - Vitamin B12 deficiency [Unknown]
  - Metabolic acidosis [Recovered/Resolved]
  - Amyotrophy [Recovering/Resolving]
  - Abdominal pain upper [Recovered/Resolved]
  - Renal graft infection [Recovered/Resolved]
  - Dysphagia [Recovered/Resolved]
  - Acute kidney injury [Recovered/Resolved with Sequelae]
  - Hypotension [Recovered/Resolved]
  - Hypokalaemia [Recovered/Resolved]
  - Hypertension [Recovered/Resolved]
  - Urinary incontinence [Unknown]

NARRATIVE: CASE EVENT DATE: 20200211
